FAERS Safety Report 4866100-7 (Version None)
Quarter: 2005Q4

REPORT INFORMATION
  Report Type: 
  Country: None (occurrence: None)
  Receive Date: 20051227
  Receipt Date: 20051219
  Transmission Date: 20060501
  Serious: Yes (Hospitalization)
  Sender: FDA-Public Use
  Company Number: DE-JNJFOC-20051105746

PATIENT
  Age: 69 Year
  Sex: Female
  Weight: 54.3 kg

DRUGS (1)
  1. INFLIXIMAB [Suspect]
     Route: 042

REACTIONS (2)
  - BURSA REMOVAL [None]
  - GASTRIC ULCER HAEMORRHAGE [None]
